FAERS Safety Report 25230460 (Version 1)
Quarter: 2025Q2

REPORT INFORMATION
  Report Type: Spontaneous
  Country: US (occurrence: US)
  Receive Date: 20250423
  Receipt Date: 20250423
  Transmission Date: 20250717
  Serious: No
  Sender: SYMOGEN
  Company Number: US-PARTNER THERAPEUTICS-2024PTX00101

PATIENT
  Sex: Male

DRUGS (2)
  1. LEUKINE [Suspect]
     Active Substance: SARGRAMOSTIM
     Indication: Illness
     Dosage: 2.9 ML (725 MCG), UNDER THE SKIN DAILY FOR 5 DAYS, REPEATED EVERY 21 TO 28 DAYS
     Route: 058
  2. STERILE WATER [Concomitant]
     Active Substance: WATER

REACTIONS (1)
  - Eating disorder [Unknown]
